FAERS Safety Report 18327446 (Version 2)
Quarter: 2020Q4

REPORT INFORMATION
  Report Type: Spontaneous
  Country: AT (occurrence: AT)
  Receive Date: 20200929
  Receipt Date: 20201009
  Transmission Date: 20210113
  Serious: Yes (Other)
  Sender: FDA-Public Use
  Company Number: AT-B.I. PHARMACEUTICALS,INC./RIDGEFIELD-2020-BI-048271

PATIENT
  Age: 76 Year
  Sex: Male
  Weight: 84 kg

DRUGS (3)
  1. OFEV [Suspect]
     Active Substance: NINTEDANIB
     Indication: IDIOPATHIC PULMONARY FIBROSIS
     Dates: start: 20161013, end: 20170621
  2. OFEV [Suspect]
     Active Substance: NINTEDANIB
     Indication: INTERSTITIAL LUNG DISEASE
     Route: 048
     Dates: start: 20180701
  3. MABTHERA [Concomitant]
     Active Substance: RITUXIMAB
     Indication: PRODUCT USED FOR UNKNOWN INDICATION

REACTIONS (7)
  - Diffuse large B-cell lymphoma [Recovering/Resolving]
  - Spontaneous cerebrospinal fluid leak syndrome [Recovering/Resolving]
  - Lung disorder [Recovering/Resolving]
  - Polyarthritis [Recovering/Resolving]
  - Anti-cyclic citrullinated peptide antibody positive [Recovering/Resolving]
  - Joint swelling [Unknown]
  - Cerebrospinal fistula [Recovering/Resolving]

NARRATIVE: CASE EVENT DATE: 201705
